FAERS Safety Report 5841927-3 (Version None)
Quarter: 2008Q3

REPORT INFORMATION
  Report Type: 
  Country: None (occurrence: None)
  Receive Date: 20080812
  Receipt Date: 20060331
  Transmission Date: 20090109
  Serious: Yes (Hospitalization, Other)
  Sender: FDA-Public Use
  Company Number: US-MERCK-0507USA03231B1

PATIENT
  Age: 0 Day
  Sex: Male
  Weight: 1 kg

DRUGS (8)
  1. SINGULAIR [Suspect]
     Indication: ASTHMA
     Route: 064
     Dates: start: 20050101, end: 20050101
  2. SINGULAIR [Suspect]
     Route: 064
     Dates: start: 20050101, end: 20050401
  3. SINGULAIR [Suspect]
     Route: 064
     Dates: start: 20040101
  4. PREDNISONE [Concomitant]
     Route: 064
  5. ALBUTEROL [Concomitant]
     Route: 064
  6. TESSALON [Concomitant]
     Route: 064
  7. COUGH, COLD, AND FLU THERAPIES (UNSPECIFIED) [Concomitant]
     Route: 064
  8. GUAIFENESIN [Concomitant]
     Route: 064

REACTIONS (2)
  - ANAEMIA [None]
  - PREMATURE BABY [None]
